FAERS Safety Report 10253274 (Version 1)
Quarter: 2014Q2

REPORT INFORMATION
  Report Type: Spontaneous
  Country: US (occurrence: US)
  Receive Date: 20140623
  Receipt Date: 20140623
  Transmission Date: 20141212
  Serious: No
  Sender: FDA-Public Use
  Company Number: US-SHIONOGI, INC-2014000117

PATIENT
  Sex: 0

DRUGS (5)
  1. OSPHENA [Suspect]
     Indication: ATROPHIC VULVOVAGINITIS
     Dosage: UNK ONE TABLET AT NIGHT WITH A MEAL
     Route: 065
     Dates: start: 2014
  2. OSPHENA [Suspect]
     Indication: OFF LABEL USE
  3. PREMPRO [Concomitant]
     Indication: PRODUCT USED FOR UNKNOWN INDICATION
     Dosage: UNK
     Route: 065
     Dates: end: 2014
  4. ESTROVEN [Concomitant]
     Indication: PRODUCT USED FOR UNKNOWN INDICATION
     Dosage: UNK
     Route: 065
  5. ASPIRIN [Concomitant]
     Indication: PAIN
     Dosage: UNK
     Route: 065

REACTIONS (4)
  - Poor quality sleep [Recovered/Resolved]
  - Off label use [Unknown]
  - Medication error [Recovered/Resolved]
  - Muscle spasms [Not Recovered/Not Resolved]
